FAERS Safety Report 7747223-1 (Version None)
Quarter: 2011Q3

REPORT INFORMATION
  Report Type: 
  Country: None (occurrence: None)
  Receive Date: 20110907
  Receipt Date: 20110825
  Transmission Date: 20111222
  Serious: Yes (Hospitalization, Congenital Anomaly)
  Sender: FDA-Public Use
  Company Number: GER/GER/11/0020822

PATIENT
  Sex: Male
  Weight: 2.14 kg

DRUGS (2)
  1. CITALOPRAM HYDROBROMIDE [Suspect]
     Indication: PRODUCT USED FOR UNKNOWN INDICATION
     Dosage: 10 MG, TRANSPLACENTAL
     Route: 064
     Dates: start: 20100304, end: 20101014
  2. FOLIO [Concomitant]

REACTIONS (7)
  - CHYLOTHORAX [None]
  - HYDROCELE [None]
  - CAESAREAN SECTION [None]
  - PREMATURE BABY [None]
  - MATERNAL DRUGS AFFECTING FOETUS [None]
  - CONGENITAL ANOMALY [None]
  - ACUTE RESPIRATORY DISTRESS SYNDROME [None]
